FAERS Safety Report 14829403 (Version 1)
Quarter: 2018Q2

REPORT INFORMATION
  Report Type: Spontaneous
  Country: US (occurrence: US)
  Receive Date: 20180430
  Receipt Date: 20180430
  Transmission Date: 20180711
  Serious: Yes (Hospitalization, Other)
  Sender: FDA-Public Use
  Company Number: US-SA-2018SA119677

PATIENT
  Age: 75 Year
  Sex: Female

DRUGS (4)
  1. APIDRA SOLOSTAR [Suspect]
     Active Substance: INSULIN GLULISINE
     Indication: DIABETES MELLITUS
     Dosage: DOSE:60 UNIT(S)
     Route: 058
  2. LANTUS SOLOSTAR [Suspect]
     Active Substance: INSULIN GLARGINE
     Indication: DIABETES MELLITUS
     Dosage: 60 OR 70 U DEPENDING ON THE BLOOD SUGAR
     Route: 058
  3. SOLOSTAR [Suspect]
     Active Substance: DEVICE
     Indication: DIABETES MELLITUS
  4. SOLOSTAR [Suspect]
     Active Substance: DEVICE
     Indication: DIABETES MELLITUS

REACTIONS (12)
  - Road traffic accident [Unknown]
  - Neck injury [Not Recovered/Not Resolved]
  - Chronic kidney disease [Not Recovered/Not Resolved]
  - Swelling [Recovered/Resolved]
  - Gait disturbance [Recovered/Resolved]
  - Cardiac failure congestive [Recovered/Resolved]
  - Skin discolouration [Recovered/Resolved]
  - Blood glucose abnormal [Unknown]
  - Respiratory arrest [Recovered/Resolved]
  - Back injury [Not Recovered/Not Resolved]
  - Dyspnoea [Recovered/Resolved]
  - Spinal cord injury [Not Recovered/Not Resolved]
